FAERS Safety Report 6163704-9 (Version None)
Quarter: 2009Q2

REPORT INFORMATION
  Report Type: 
  Country: None (occurrence: None)
  Receive Date: 20090420
  Receipt Date: 20090408
  Transmission Date: 20091009
  Serious: Yes (Other)
  Sender: FDA-Public Use
  Company Number: 2009US000822

PATIENT
  Age: 63 Year
  Sex: Female

DRUGS (7)
  1. LEXISCAN [Suspect]
     Indication: SCAN MYOCARDIAL PERFUSION
     Dosage: 0.4 MG, TOTAL DOSE, IV NOS
     Route: 042
     Dates: start: 20090309, end: 20090309
  2. NASONEX [Concomitant]
  3. OMEPRAZOLE [Concomitant]
  4. ALLEGRA D (FEXOFENADINE HYDROCHLORIDE) [Concomitant]
  5. SYNTHROID [Concomitant]
  6. CELEBREX [Concomitant]
  7. INDERAL [Concomitant]

REACTIONS (4)
  - DYSPNOEA [None]
  - FATIGUE [None]
  - HYPERTENSION [None]
  - VENTRICULAR EXTRASYSTOLES [None]
